FAERS Safety Report 18013200 (Version 2)
Quarter: 2020Q4

REPORT INFORMATION
  Report Type: Report from Study
  Country: None (occurrence: US)
  Receive Date: 20200713
  Receipt Date: 20201105
  Transmission Date: 20210113
  Serious: No
  Sender: FDA-Public Use
  Company Number: US-BIOVITRUM-2020US1706

PATIENT
  Sex: Female

DRUGS (1)
  1. KINERET [Suspect]
     Active Substance: ANAKINRA
     Indication: PRODUCT USED FOR UNKNOWN INDICATION
     Route: 058
     Dates: start: 20200327

REACTIONS (10)
  - Fibromyalgia [Unknown]
  - Influenza like illness [Unknown]
  - Injection site rash [Unknown]
  - Pain [Unknown]
  - Injection site bruising [Unknown]
  - Drug ineffective [Unknown]
  - Oropharyngeal pain [Recovering/Resolving]
  - Injection site pain [Unknown]
  - Arthralgia [Unknown]
  - Product dose omission issue [Unknown]
